FAERS Safety Report 9744806 (Version 1)
Quarter: 2013Q4

REPORT INFORMATION
  Report Type: Spontaneous
  Country: DE (occurrence: DE)
  Receive Date: 20131210
  Receipt Date: 20131210
  Transmission Date: 20140711
  Serious: Yes (Other)
  Sender: FDA-Public Use
  Company Number: DE-JNJFOC-20131204809

PATIENT
  Sex: Female

DRUGS (1)
  1. NICORETTE 2MG [Suspect]
     Indication: EX-TOBACCO USER
     Dosage: 25-30 GUMS DAILY
     Route: 048
     Dates: start: 2012

REACTIONS (3)
  - Withdrawal syndrome [Unknown]
  - Nicotine dependence [Not Recovered/Not Resolved]
  - Extra dose administered [Unknown]
